FAERS Safety Report 9295154 (Version 1)
Quarter: 2013Q1

REPORT INFORMATION
  Report Type: Spontaneous
  Country: US (occurrence: None)
  Receive Date: 20121227
  Receipt Date: 20121227
  Transmission Date: 20140127
  Serious: No
  Sender: FDA-Public Use
  Company Number: PHEH2012US019606

PATIENT
  Age: 83 Year
  Sex: Female
  Weight: 88.4 kg

DRUGS (8)
  1. AFINITOR [Suspect]
     Indication: BREAST CANCER
     Route: 048
     Dates: start: 20120903, end: 20120914
  2. AROMASIN (EXEMESTANE) [Suspect]
     Route: 048
     Dates: start: 20120903, end: 20120914
  3. ALLOPURINOL [Concomitant]
  4. AMLODIPINE (AMLODIPINE) [Concomitant]
  5. ACETYLSALICYLIC ACID (ACETYLSALICYLIC ACID) [Concomitant]
  6. LEVOTHROID (LEVOTHYROXINE SODIUM) [Concomitant]
  7. SIMCOR (NICOTINIC ACID, SIMVASTATIN) [Concomitant]
  8. BENICORT (BETAMETHASONE SODIUM  PHOSPHATE) [Concomitant]

REACTIONS (2)
  - Vulvovaginal mycotic infection [None]
  - Diarrhoea [None]
